FAERS Safety Report 7207905-7 (Version None)
Quarter: 2010Q4

REPORT INFORMATION
  Report Type: 
  Country: None (occurrence: None)
  Receive Date: 20101221
  Receipt Date: 20101203
  Transmission Date: 20110411
  Serious: Yes (Hospitalization)
  Sender: FDA-Public Use
  Company Number: JPI-P-013149

PATIENT
  Age: 66 Year
  Sex: Female
  Weight: 84.8226 kg

DRUGS (16)
  1. XYREM [Suspect]
     Indication: CATAPLEXY
     Dosage: (2 IN 1 D), ORAL, (4 GM FIRST DOSE/3.75 GM SECOND DOSE), ORAL
     Route: 048
     Dates: start: 20060112
  2. FLUOXETINE HCL [Concomitant]
  3. ESTRADIOL [Concomitant]
  4. EZETIMIBE [Concomitant]
  5. ESOMEPRAZOLE MAGNESIUM [Concomitant]
  6. METFORMIN [Concomitant]
  7. URUMAR [Concomitant]
  8. GLIMEPIRIDE [Concomitant]
  9. DILTIAZEM [Concomitant]
  10. GABAPENTIN [Concomitant]
  11. PIOGLITAZONE HYDROCHLORIDE [Concomitant]
  12. LOVASTATIN [Concomitant]
  13. ACETYLSALICYLIC ACID [Concomitant]
  14. NITROGLYCERIN [Concomitant]
  15. FUROSEMIDE [Concomitant]
  16. MELOXICAM [Concomitant]

REACTIONS (2)
  - ARTHROPOD BITE [None]
  - STAPHYLOCOCCAL INFECTION [None]
